FAERS Safety Report 6156372-3 (Version None)
Quarter: 2009Q2

REPORT INFORMATION
  Report Type: 
  Country: None (occurrence: None)
  Receive Date: 20090416
  Receipt Date: 20070831
  Transmission Date: 20091009
  Serious: Yes (Hospitalization, Other)
  Sender: FDA-Public Use
  Company Number: US-ASTRAZENECA-2006UW24675

PATIENT
  Age: 8516 Day
  Sex: Female
  Weight: 141.5 kg

DRUGS (48)
  1. SEROQUEL [Suspect]
     Indication: BIPOLAR DISORDER
     Route: 048
     Dates: start: 20011101, end: 20070101
  2. SEROQUEL [Suspect]
     Indication: DEPRESSION
     Route: 048
     Dates: start: 20011101, end: 20070101
  3. SEROQUEL [Suspect]
     Dosage: 25 TO 450 MG
     Route: 048
     Dates: start: 20011101
  4. SEROQUEL [Suspect]
     Dosage: 25 TO 450 MG
     Route: 048
     Dates: start: 20011101
  5. ACEON [Concomitant]
  6. ADVAIR HFA [Concomitant]
  7. ALLER [Concomitant]
  8. AMOXICILLIN [Concomitant]
  9. AMBIEN [Concomitant]
  10. ASTELIN [Concomitant]
  11. ATIVAN [Concomitant]
  12. ATACAND [Concomitant]
  13. AUGMENTIN '125' [Concomitant]
  14. BENTYL [Concomitant]
  15. BIAXIN XL [Concomitant]
  16. BUTALBITAL [Concomitant]
  17. CARAFATE [Concomitant]
  18. CELEBREX [Concomitant]
  19. CEFZIL [Concomitant]
  20. CODEINE [Concomitant]
  21. DARVOCET [Concomitant]
  22. FLAGYL [Concomitant]
  23. EFFEXOR [Concomitant]
  24. HISTUSSIN [Concomitant]
  25. LOTRISONE [Concomitant]
  26. LEVAQUIN [Concomitant]
  27. LEXAPRO [Concomitant]
  28. MOBIC [Concomitant]
  29. NASACORT [Concomitant]
  30. NEURONTIN [Concomitant]
  31. NEXIUM [Concomitant]
  32. ORTHO EVRA [Concomitant]
  33. PERCOCET [Concomitant]
  34. PEPCID [Concomitant]
  35. PROTONIX [Concomitant]
  36. PRILOSEC [Concomitant]
  37. REMERON [Concomitant]
  38. RYNATAN [Concomitant]
  39. TYLENOL [Concomitant]
  40. TIGAN [Concomitant]
  41. ULTRAM [Concomitant]
  42. VICODIN [Concomitant]
  43. WELLBUTRIN [Concomitant]
  44. XANAX [Concomitant]
  45. ZANTAC [Concomitant]
  46. ZITHROMAX [Concomitant]
  47. ZELNORM [Concomitant]
  48. PREVACID [Concomitant]

REACTIONS (47)
  - ABDOMINAL PAIN UPPER [None]
  - ACUTE SINUSITIS [None]
  - AGITATION [None]
  - ANXIETY [None]
  - ARTHROPATHY [None]
  - ASTHMA [None]
  - BACK PAIN [None]
  - CHEST PAIN [None]
  - CIRCADIAN RHYTHM SLEEP DISORDER [None]
  - CONFUSIONAL STATE [None]
  - CRYING [None]
  - DIABETES MELLITUS [None]
  - DIARRHOEA [None]
  - DUODENITIS [None]
  - DYSFUNCTIONAL UTERINE BLEEDING [None]
  - DYSMENORRHOEA [None]
  - DYSPEPSIA [None]
  - FATIGUE [None]
  - FEELING ABNORMAL [None]
  - GASTROOESOPHAGEAL REFLUX DISEASE [None]
  - HEADACHE [None]
  - HIATUS HERNIA [None]
  - HYPOAESTHESIA [None]
  - HYPOGLYCAEMIA [None]
  - INSOMNIA [None]
  - INTERVERTEBRAL DISC PROTRUSION [None]
  - LEFT VENTRICULAR HYPERTROPHY [None]
  - MANIA [None]
  - MIGRAINE [None]
  - MOOD SWINGS [None]
  - NEUROPATHY PERIPHERAL [None]
  - OBSESSIVE-COMPULSIVE DISORDER [None]
  - PAIN IN EXTREMITY [None]
  - PANIC ATTACK [None]
  - PARAESTHESIA [None]
  - POLLAKIURIA [None]
  - POST-TRAUMATIC STRESS DISORDER [None]
  - PRESSURE OF SPEECH [None]
  - PRODUCTIVE COUGH [None]
  - RADICULOPATHY [None]
  - SINUS CONGESTION [None]
  - SLEEP APNOEA SYNDROME [None]
  - SNORING [None]
  - SUICIDAL IDEATION [None]
  - TOOTHACHE [None]
  - UPPER RESPIRATORY TRACT INFECTION [None]
  - VOMITING [None]
